FAERS Safety Report 18741874 (Version 1)
Quarter: 2021Q1

REPORT INFORMATION
  Report Type: Spontaneous
  Country: CA (occurrence: CA)
  Receive Date: 20210114
  Receipt Date: 20210114
  Transmission Date: 20210419
  Serious: Yes (Death, Hospitalization, Other)
  Sender: FDA-Public Use
  Company Number: CA-PURDUE-USA-2020-0196645

PATIENT
  Age: 40 Year
  Sex: Male

DRUGS (2)
  1. OXYCONTIN [Suspect]
     Active Substance: OXYCODONE HYDROCHLORIDE
     Dosage: 80 MG, QD PRN
     Route: 048
     Dates: start: 1996
  2. OXYCONTIN [Suspect]
     Active Substance: OXYCODONE HYDROCHLORIDE
     Indication: PAIN
     Dosage: UNK, UNK
     Route: 048

REACTIONS (5)
  - Drug withdrawal syndrome [Unknown]
  - Road traffic accident [Fatal]
  - Drug dependence [Unknown]
  - Atrial fibrillation [Unknown]
  - Drug tolerance [Unknown]

NARRATIVE: CASE EVENT DATE: 2003
